FAERS Safety Report 20245098 (Version 1)
Quarter: 2021Q4

REPORT INFORMATION
  Report Type: Spontaneous
  Country: JP (occurrence: JP)
  Receive Date: 20211229
  Receipt Date: 20211229
  Transmission Date: 20220303
  Serious: Yes (Hospitalization)
  Sender: FDA-Public Use
  Company Number: JP-Eisai-202110114_DVG_P_1

PATIENT
  Age: 35 Year
  Sex: Female

DRUGS (1)
  1. DAYVIGO [Suspect]
     Active Substance: LEMBOREXANT
     Indication: Product used for unknown indication
     Route: 048
     Dates: start: 20211221, end: 20211221

REACTIONS (2)
  - Depressed level of consciousness [Unknown]
  - Overdose [Unknown]

NARRATIVE: CASE EVENT DATE: 20211221
